FAERS Safety Report 25194513 (Version 2)
Quarter: 2025Q2

REPORT INFORMATION
  Report Type: Spontaneous
  Country: US (occurrence: US)
  Receive Date: 20250414
  Receipt Date: 20250416
  Transmission Date: 20250717
  Serious: Yes (Other)
  Sender: ACERUS PHARMACEUTICALS
  Company Number: US-ACERUSPHRM-2025-US-000029

PATIENT
  Age: 68 Year
  Sex: Male

DRUGS (4)
  1. TESTOSTERONE [Suspect]
     Active Substance: TESTOSTERONE
     Indication: Hormone replacement therapy
     Route: 065
  2. Levothyroxine replacement therapy [Concomitant]
     Indication: Thyroid hormone replacement therapy
     Route: 065
  3. CoQ10 supplements [Concomitant]
     Indication: Product used for unknown indication
     Route: 065
  4. folate supplementation [Concomitant]
     Indication: Methylenetetrahydrofolate reductase gene mutation

REACTIONS (2)
  - Polycythaemia [Unknown]
  - Optic ischaemic neuropathy [Unknown]
